FAERS Safety Report 20322238 (Version 1)
Quarter: 2022Q1

REPORT INFORMATION
  Report Type: Spontaneous
  Country: DE (occurrence: None)
  Receive Date: 20220111
  Receipt Date: 20220111
  Transmission Date: 20220423
  Serious: No
  Sender: FDA-Public Use
  Company Number: DE-Kindeva Drug Delivery Limited-2021COV24964

PATIENT

DRUGS (1)
  1. ALVESCO [Suspect]
     Active Substance: CICLESONIDE
     Indication: COVID-19
     Route: 055

REACTIONS (2)
  - Off label use [Unknown]
  - Drug ineffective [Unknown]
